FAERS Safety Report 19947713 (Version 2)
Quarter: 2021Q4

REPORT INFORMATION
  Report Type: Spontaneous
  Country: DE (occurrence: DE)
  Receive Date: 20211012
  Receipt Date: 20211015
  Transmission Date: 20220303
  Serious: Yes (Life-Threatening)
  Sender: FDA-Public Use
  Company Number: 2021A762115

PATIENT
  Sex: Male
  Weight: 90 kg

DRUGS (14)
  1. CANDESARTAN [Suspect]
     Active Substance: CANDESARTAN
     Dosage: 56 TABLET, 1 ONLY
     Route: 048
     Dates: start: 20210901, end: 20210901
  2. DAPAGLIFLOZIN [Suspect]
     Active Substance: DAPAGLIFLOZIN
     Dosage: 28 TABLET, 1 ONLY
     Route: 048
     Dates: start: 20210901, end: 20210901
  3. METFORMIN HYDROCHLORIDE\SAXAGLIPTIN [Suspect]
     Active Substance: METFORMIN HYDROCHLORIDE\SAXAGLIPTIN
     Dosage: 7 TABLET, 1 ONLY
     Route: 048
     Dates: start: 20210901, end: 20210901
  4. ASPIRIN [Suspect]
     Active Substance: ASPIRIN
     Dosage: 160 TABLET, 1 ONLY
     Route: 048
     Dates: start: 20210901, end: 20210901
  5. ACETAMINOPHEN [Suspect]
     Active Substance: ACETAMINOPHEN
     Dosage: UNK
     Route: 065
     Dates: start: 20210901, end: 20210901
  6. FOLIC ACID [Suspect]
     Active Substance: FOLIC ACID
     Dosage: 110 TABLET, 1 ONLY
     Route: 048
     Dates: start: 20210901, end: 20210901
  7. SIMVASTATIN [Suspect]
     Active Substance: SIMVASTATIN
     Dosage: 175 TABLET, 1 ONLY
     Route: 048
     Dates: start: 20210901, end: 20210901
  8. PANTOZOL [Suspect]
     Active Substance: PANTOPRAZOLE SODIUM
     Dosage: 75 TABLET, 1 ONLY
     Route: 048
     Dates: start: 20210901, end: 20210901
  9. CHOLECALCIFEROL [Suspect]
     Active Substance: CHOLECALCIFEROL
     Dosage: 52 TABLET, 1 ONLY
     Route: 048
     Dates: start: 20210901, end: 20210901
  10. PANTOPRAZOLE SODIUM [Suspect]
     Active Substance: PANTOPRAZOLE SODIUM
     Dosage: UNK
     Route: 048
     Dates: start: 20210901, end: 20210901
  11. AMLODIPINE BESYLATE [Suspect]
     Active Substance: AMLODIPINE BESYLATE
     Dosage: 25 TABLET, 1 ONLY
     Route: 048
     Dates: start: 20210901, end: 20210901
  12. BUCETIN\CAFFEINE\PHENACETIN\PROPYPHENAZONE\SULFAMIDOPYRINE\THIAMINE [Suspect]
     Active Substance: BUCETIN\CAFFEINE\PHENACETIN\PROPYPHENAZONE\SULFAMIDOPYRINE\THIAMINE
     Dosage: 20 TABLET, 1 ONLY
     Route: 048
     Dates: start: 20210901, end: 20210901
  13. PREDNISOLONE [Suspect]
     Active Substance: PREDNISOLONE
     Dosage: 80 TABLET, 1 ONLY
     Route: 048
     Dates: start: 20210901, end: 20210901
  14. HYDROCHLOROTHIAZIDE [Suspect]
     Active Substance: HYDROCHLOROTHIAZIDE
     Dosage: 90 TABLET, 1 ONLY
     Route: 048
     Dates: start: 20210901, end: 20210901

REACTIONS (8)
  - Suicide attempt [Recovered/Resolved]
  - Intentional overdose [Recovered/Resolved]
  - Tachycardia [Recovered/Resolved]
  - Blood glucose increased [Recovered/Resolved]
  - Somnolence [Recovered/Resolved]
  - Heart rate increased [Recovered/Resolved]
  - Vomiting [Recovered/Resolved]
  - Intentional self-injury [Recovered/Resolved]

NARRATIVE: CASE EVENT DATE: 20210901
